FAERS Safety Report 16873381 (Version 2)
Quarter: 2020Q1

REPORT INFORMATION
  Report Type: Spontaneous
  Country: US (occurrence: US)
  Receive Date: 20191001
  Receipt Date: 20200207
  Transmission Date: 20200409
  Serious: Yes (Hospitalization, Other)
  Sender: FDA-Public Use
  Company Number: US-ASTRAZENECA-2019SF36949

PATIENT
  Age: 18502 Day
  Sex: Male
  Weight: 96.6 kg

DRUGS (25)
  1. ONGLYZA [Suspect]
     Active Substance: SAXAGLIPTIN HYDROCHLORIDE
     Indication: TYPE 2 DIABETES MELLITUS
     Dosage: 5.0MG UNKNOWN
     Route: 048
     Dates: start: 20161023
  2. HYDRALAZINE HCL [Concomitant]
     Active Substance: HYDRALAZINE HYDROCHLORIDE
     Dosage: 50 MG TABLET
     Dates: start: 20161023
  3. METFORMIN [Concomitant]
     Active Substance: METFORMIN HYDROCHLORIDE
     Dates: start: 20161023
  4. PANTOPRAZOLE [Concomitant]
     Active Substance: PANTOPRAZOLE
     Dates: start: 20170517
  5. LOSARTAN. [Concomitant]
     Active Substance: LOSARTAN
     Dosage: 100 MG
     Dates: start: 20161023
  6. HYDROCODONE/ACETAM [Concomitant]
     Dates: start: 20161010
  7. GABAPENTIN. [Concomitant]
     Active Substance: GABAPENTIN
     Dates: start: 20170104
  8. FUROSEMIDE. [Concomitant]
     Active Substance: FUROSEMIDE
     Dates: start: 20170802
  9. LABETALOL [Concomitant]
     Active Substance: LABETALOL\LABETALOL HYDROCHLORIDE
  10. CIALIS [Concomitant]
     Active Substance: TADALAFIL
     Dates: start: 20170426
  11. PLAVIX [Concomitant]
     Active Substance: CLOPIDOGREL BISULFATE
  12. AMIODARONE [Concomitant]
     Active Substance: AMIODARONE
     Dates: start: 20171023
  13. ONGLYZA [Suspect]
     Active Substance: SAXAGLIPTIN HYDROCHLORIDE
     Indication: TYPE 2 DIABETES MELLITUS
     Dosage: 5.0MG UNKNOWN
     Route: 048
     Dates: start: 20161001, end: 20190227
  14. AMLODIPINE [Concomitant]
     Active Substance: AMLODIPINE BESYLATE
     Dates: start: 20161023
  15. ONGLYZA [Suspect]
     Active Substance: SAXAGLIPTIN HYDROCHLORIDE
     Indication: TYPE 2 DIABETES MELLITUS
     Route: 048
     Dates: start: 20161023
  16. LISINOPRIL. [Concomitant]
     Active Substance: LISINOPRIL
     Dates: start: 20161023
  17. TESTOSTERONE. [Concomitant]
     Active Substance: TESTOSTERONE
     Dates: start: 20170408
  18. BRILINTA [Concomitant]
     Active Substance: TICAGRELOR
     Dates: start: 20170728
  19. ATORVASTATIN [Concomitant]
     Active Substance: ATORVASTATIN
     Dates: start: 20171023
  20. GLIPIZIDE. [Concomitant]
     Active Substance: GLIPIZIDE
     Dates: start: 20161023
  21. METOPROLOL TAR [Concomitant]
     Active Substance: METOPROLOL TARTRATE
     Dates: start: 20161023
  22. AMOXICILLINE [Concomitant]
     Active Substance: AMOXICILLIN
     Dates: start: 20161010
  23. ASPIRIN. [Concomitant]
     Active Substance: ASPIRIN
  24. NITROGLYCERINE [Concomitant]
     Active Substance: NITROGLYCERIN
  25. MORPHINE SULPHATE [Concomitant]
     Active Substance: MORPHINE SULFATE

REACTIONS (4)
  - Cardiac failure [Unknown]
  - Myocardial infarction [Unknown]
  - Acute myocardial infarction [Unknown]
  - Cardiac failure congestive [Unknown]

NARRATIVE: CASE EVENT DATE: 20170724
